FAERS Safety Report 11854646 (Version 3)
Quarter: 2016Q1

REPORT INFORMATION
  Report Type: Spontaneous
  Country: DE (occurrence: DE)
  Receive Date: 20151221
  Receipt Date: 20160204
  Transmission Date: 20160526
  Serious: Yes (Other)
  Sender: FDA-Public Use
  Company Number: DE-SHIRE-DE201516216

PATIENT
  Age: 13 Year
  Sex: Female

DRUGS (4)
  1. ELVANSE [Suspect]
     Active Substance: LISDEXAMFETAMINE DIMESYLATE
     Indication: ATTENTION DEFICIT/HYPERACTIVITY DISORDER
     Dosage: 30 MG, 1X/DAY:QD (1-0-0  NOT AT WEEKENDS)
     Route: 048
     Dates: start: 20150915, end: 20151109
  2. ELVANSE [Suspect]
     Active Substance: LISDEXAMFETAMINE DIMESYLATE
     Dosage: 40 MG, 1X/DAY:QD (1-0-0)
     Route: 048
     Dates: start: 20151125, end: 20151222
  3. DAOSIN [Concomitant]
     Indication: HISTAMINE INTOLERANCE
     Dosage: 1 DF, AS REQ^D
     Route: 065
  4. ELVANSE [Suspect]
     Active Substance: LISDEXAMFETAMINE DIMESYLATE
     Dosage: 50 MG, 1X/DAY:QD (1-0-0  NOT AT WEEKENDS)
     Route: 048
     Dates: start: 20151110, end: 20151124

REACTIONS (6)
  - Abdominal pain [Recovered/Resolved]
  - Haematemesis [Recovered/Resolved]
  - Drug effect incomplete [Recovered/Resolved]
  - Incorrect dose administered [Recovered/Resolved]
  - Nausea [Recovered/Resolved]
  - Decreased appetite [Recovered/Resolved]

NARRATIVE: CASE EVENT DATE: 2015
